FAERS Safety Report 22617370 (Version 1)
Quarter: 2023Q2

REPORT INFORMATION
  Report Type: Spontaneous
  Country: US (occurrence: None)
  Receive Date: 20230620
  Receipt Date: 20230620
  Transmission Date: 20230721
  Serious: No
  Sender: FDA-Public Use
  Company Number: 2023A141051

PATIENT

DRUGS (1)
  1. ZOMIG [Suspect]
     Active Substance: ZOLMITRIPTAN
     Indication: Product used for unknown indication
     Dosage: UNK

REACTIONS (5)
  - Hallucination [Unknown]
  - Tachycardia [Unknown]
  - Oropharyngeal pain [Unknown]
  - Chest pain [Unknown]
  - Fatigue [Unknown]
